FAERS Safety Report 7582302-3 (Version None)
Quarter: 2011Q2

REPORT INFORMATION
  Report Type: 
  Country: None (occurrence: None)
  Receive Date: 20110630
  Receipt Date: 20110620
  Transmission Date: 20111010
  Serious: Yes (Hospitalization)
  Sender: FDA-Public Use
  Company Number: US-BAYER-201042119NA

PATIENT
  Age: 23 Year
  Sex: Female
  Weight: 73 kg

DRUGS (7)
  1. YASMIN [Suspect]
     Indication: CONTRACEPTION
     Dosage: UNK UNK, UNK
     Route: 048
     Dates: start: 20040601
  2. YAZ [Suspect]
     Indication: PRODUCT USED FOR UNKNOWN INDICATION
     Dosage: UNK UNK, UNK
     Route: 048
     Dates: start: 20040612, end: 20040712
  3. MONOCLINE [Concomitant]
     Indication: ACNE
     Dosage: UNK UNK, PRN
     Route: 048
  4. NSAID'S [Concomitant]
  5. PROZAC [Concomitant]
     Indication: DEPRESSION
     Dosage: 20 MG, UNK
     Route: 048
     Dates: start: 20020101
  6. TAZORAC [Concomitant]
     Route: 061
  7. FLONASE [Concomitant]
     Route: 045

REACTIONS (3)
  - THROMBOSIS [None]
  - INJURY [None]
  - CEREBROVASCULAR ACCIDENT [None]
